FAERS Safety Report 15018779 (Version 2)
Quarter: 2018Q2

REPORT INFORMATION
  Report Type: Spontaneous
  Country: US (occurrence: US)
  Receive Date: 20180616
  Receipt Date: 20180628
  Transmission Date: 20180711
  Serious: Yes (Other)
  Sender: FDA-Public Use
  Company Number: US-ASTRAZENECA-2018SE70597

PATIENT
  Age: 924 Month
  Sex: Female
  Weight: 122 kg

DRUGS (15)
  1. INSULIN [Concomitant]
     Active Substance: INSULIN NOS
  2. TRESIBA INSULIN [Concomitant]
     Dosage: 40 UNITS, DAILY
  3. INSULIN [Concomitant]
     Active Substance: INSULIN NOS
  4. HUMALOG [Concomitant]
     Active Substance: INSULIN LISPRO
     Dosage: 10 UNITS, THREE TIMES A DAY
  5. HUMALOG [Concomitant]
     Active Substance: INSULIN LISPRO
     Dosage: 5 UNITS, THREE TIMES A DAY
  6. HUMALOG [Concomitant]
     Active Substance: INSULIN LISPRO
     Dosage: 10 UNITS, THREE TIMES A DAY
  7. MAGNESIUM OXIDE. [Concomitant]
     Active Substance: MAGNESIUM OXIDE
     Route: 048
  8. METFORMIN [Concomitant]
     Active Substance: METFORMIN HYDROCHLORIDE
     Route: 065
  9. LASIX [Concomitant]
     Active Substance: FUROSEMIDE
  10. FUROSEMIDE. [Concomitant]
     Active Substance: FUROSEMIDE
     Route: 048
  11. INSULIN LISPRO [Concomitant]
     Active Substance: INSULIN LISPRO
  12. LEVOTHYROXINE SODIUM. [Concomitant]
     Active Substance: LEVOTHYROXINE SODIUM
     Route: 048
  13. BYDUREON [Suspect]
     Active Substance: EXENATIDE
     Indication: TYPE 2 DIABETES MELLITUS
     Route: 058
     Dates: start: 20180514, end: 20180514
  14. CETIRIZINE [Concomitant]
     Active Substance: CETIRIZINE HYDROCHLORIDE
     Dosage: 10.0MG AS REQUIRED
     Route: 048
  15. LIRAGLUTIDE [Concomitant]
     Active Substance: LIRAGLUTIDE

REACTIONS (9)
  - Injection site rash [Recovered/Resolved]
  - Injection site infection [Unknown]
  - Dizziness [Recovered/Resolved]
  - Drug ineffective [Unknown]
  - Injection site pruritus [Unknown]
  - Injection site erythema [Unknown]
  - Injection site urticaria [Unknown]
  - Drug dispensing error [Unknown]
  - Injection site pain [Unknown]

NARRATIVE: CASE EVENT DATE: 201805
